APPROVED DRUG PRODUCT: DILTIAZEM HYDROCHLORIDE
Active Ingredient: DILTIAZEM HYDROCHLORIDE
Strength: 120MG
Dosage Form/Route: CAPSULE, EXTENDED RELEASE;ORAL
Application: A212317 | Product #003 | TE Code: AB1
Applicant: GLENMARK PHARMACEUTICALS LTD
Approved: Mar 22, 2021 | RLD: No | RS: No | Type: RX